FAERS Safety Report 4869464-3 (Version None)
Quarter: 2005Q4

REPORT INFORMATION
  Report Type: 
  Country: None (occurrence: None)
  Receive Date: 20051230
  Receipt Date: 20051220
  Transmission Date: 20060501
  Serious: Yes (Hospitalization)
  Sender: FDA-Public Use
  Company Number: JP-MERCK-0512USA03818

PATIENT
  Age: 78 Year
  Sex: Female

DRUGS (2)
  1. PEPCID [Suspect]
     Indication: GASTRITIS
     Route: 048
     Dates: end: 20051101
  2. [THERAPY UNSPECIFIED] [Concomitant]
     Route: 065

REACTIONS (2)
  - OSTEOARTHRITIS [None]
  - PLATELET COUNT DECREASED [None]
